FAERS Safety Report 5910854-5 (Version None)
Quarter: 2008Q4

REPORT INFORMATION
  Report Type: 
  Country: None (occurrence: None)
  Receive Date: 20081007
  Receipt Date: 20080523
  Transmission Date: 20090506
  Serious: No
  Sender: FDA-Public Use
  Company Number: US-ASTRAZENECA-2008UW10598

PATIENT
  Age: 54 Year
  Sex: Female
  Weight: 61.2 kg

DRUGS (3)
  1. ARIMIDEX [Suspect]
     Indication: BREAST CANCER
     Route: 048
  2. LIPITOR [Concomitant]
  3. EFFEXOR [Concomitant]

REACTIONS (3)
  - BACK PAIN [None]
  - FATIGUE [None]
  - JOINT SWELLING [None]
